FAERS Safety Report 18605318 (Version 3)
Quarter: 2021Q1

REPORT INFORMATION
  Report Type: Spontaneous
  Country: AT (occurrence: AT)
  Receive Date: 20201211
  Receipt Date: 20210107
  Transmission Date: 20210419
  Serious: Yes (Hospitalization, Other)
  Sender: FDA-Public Use
  Company Number: AT-JNJFOC-20201206562

PATIENT
  Age: 38 Year
  Sex: Female

DRUGS (21)
  1. RISPERDAL [Suspect]
     Active Substance: RISPERIDONE
     Route: 065
     Dates: start: 20200615, end: 20200615
  2. RISPERDAL [Suspect]
     Active Substance: RISPERIDONE
     Route: 065
     Dates: start: 20200616, end: 20200628
  3. TEMESTA [LORAZEPAM] [Suspect]
     Active Substance: LORAZEPAM
     Route: 065
     Dates: start: 20200630, end: 20200630
  4. TEMESTA [LORAZEPAM] [Suspect]
     Active Substance: LORAZEPAM
     Route: 065
     Dates: start: 20200701, end: 20200702
  5. CANDESARTAN. [Suspect]
     Active Substance: CANDESARTAN
     Route: 065
     Dates: start: 20200630, end: 20200630
  6. CANDESARTAN. [Suspect]
     Active Substance: CANDESARTAN
     Route: 065
     Dates: start: 20200701, end: 20200702
  7. RISPERDAL [Suspect]
     Active Substance: RISPERIDONE
     Indication: SCHIZOAFFECTIVE DISORDER
     Route: 065
     Dates: start: 20200608, end: 20200608
  8. RISPERDAL [Suspect]
     Active Substance: RISPERIDONE
     Route: 065
     Dates: start: 20200629, end: 20200706
  9. TEMESTA [LORAZEPAM] [Suspect]
     Active Substance: LORAZEPAM
     Route: 065
     Dates: start: 20200618, end: 20200624
  10. TEMESTA [LORAZEPAM] [Suspect]
     Active Substance: LORAZEPAM
     Route: 065
     Dates: start: 20200703, end: 20200706
  11. QUILONORM [LITHIUM CARBONATE] [Suspect]
     Active Substance: LITHIUM CARBONATE
     Route: 065
     Dates: start: 20200623, end: 20200706
  12. CANDESARTAN. [Suspect]
     Active Substance: CANDESARTAN
     Route: 065
     Dates: start: 20200625, end: 20200629
  13. CANDESARTAN. [Suspect]
     Active Substance: CANDESARTAN
     Route: 065
     Dates: start: 20200608, end: 20200617
  14. CANDESARTAN. [Suspect]
     Active Substance: CANDESARTAN
     Route: 065
     Dates: start: 20200618, end: 20200624
  15. QUILONORM [LITHIUM CARBONATE] [Suspect]
     Active Substance: LITHIUM CARBONATE
     Indication: PRODUCT USED FOR UNKNOWN INDICATION
     Route: 065
     Dates: start: 20200619, end: 20200621
  16. TEMESTA [LORAZEPAM] [Suspect]
     Active Substance: LORAZEPAM
     Route: 065
     Dates: start: 20200625, end: 20200629
  17. RISPERDAL [Suspect]
     Active Substance: RISPERIDONE
     Route: 065
     Dates: start: 20200609, end: 20200614
  18. TEMESTA [LORAZEPAM] [Suspect]
     Active Substance: LORAZEPAM
     Indication: PRODUCT USED FOR UNKNOWN INDICATION
     Route: 065
     Dates: start: 20200608, end: 20200617
  19. QUILONORM [LITHIUM CARBONATE] [Suspect]
     Active Substance: LITHIUM CARBONATE
     Route: 065
     Dates: start: 20200622, end: 20200622
  20. CANDESARTAN. [Suspect]
     Active Substance: CANDESARTAN
     Indication: PRODUCT USED FOR UNKNOWN INDICATION
     Route: 065
  21. CANDESARTAN. [Suspect]
     Active Substance: CANDESARTAN
     Route: 065
     Dates: start: 20200703, end: 20200706

REACTIONS (2)
  - Galactorrhoea [Recovered/Resolved]
  - Hospitalisation [Unknown]

NARRATIVE: CASE EVENT DATE: 20200628
